FAERS Safety Report 23637998 (Version 1)
Quarter: 2024Q1

REPORT INFORMATION
  Report Type: Spontaneous
  Country: US (occurrence: US)
  Receive Date: 20240315
  Receipt Date: 20240315
  Transmission Date: 20240410
  Serious: Yes (Other)
  Sender: FDA-Public Use
  Company Number: US-BAYER-2024A035121

PATIENT
  Sex: Male

DRUGS (2)
  1. BAYER ASPIRIN [Suspect]
     Active Substance: ASPIRIN
     Indication: Myocardial infarction
     Dosage: 2 DF
  2. BAYER LOW DOSE [Suspect]
     Active Substance: ASPIRIN
     Indication: Myocardial infarction

REACTIONS (6)
  - Drug effective for unapproved indication [None]
  - Skin discolouration [None]
  - Bruxism [None]
  - Chest discomfort [None]
  - Vital functions abnormal [None]
  - Myocardial infarction [None]
